FAERS Safety Report 20411328 (Version 1)
Quarter: 2022Q1

REPORT INFORMATION
  Report Type: Spontaneous
  Country: JP (occurrence: JP)
  Receive Date: 20220201
  Receipt Date: 20220201
  Transmission Date: 20220423
  Serious: Yes (Life-Threatening, Hospitalization)
  Sender: FDA-Public Use
  Company Number: JP-PERRIGO-22JP000760

PATIENT
  Age: 40 Year
  Sex: Male

DRUGS (4)
  1. ACETAMINOPHEN [Suspect]
     Active Substance: ACETAMINOPHEN
     Indication: Oral pain
     Dosage: UNK
     Route: 048
  2. ACETAMINOPHEN [Suspect]
     Active Substance: ACETAMINOPHEN
     Indication: Oral infection
  3. ACETAMINOPHEN [Suspect]
     Active Substance: ACETAMINOPHEN
     Indication: Pyrexia
  4. AMPICILLIN [Suspect]
     Active Substance: AMPICILLIN
     Indication: Oral infection
     Dosage: 3 G, QD
     Route: 042

REACTIONS (1)
  - Stevens-Johnson syndrome [Recovering/Resolving]
